FAERS Safety Report 16347109 (Version 2)
Quarter: 2020Q2

REPORT INFORMATION
  Report Type: Spontaneous
  Country: US (occurrence: US)
  Receive Date: 20190523
  Receipt Date: 20200623
  Transmission Date: 20200713
  Serious: No
  Sender: FDA-Public Use
  Company Number: US-TARO-2019TAR00194

PATIENT
  Age: 80 Year
  Sex: Female
  Weight: 49.89 kg

DRUGS (9)
  1. CLORAZEPATE DIPOTASSIUM TABLETS USP 7.5 MG [Suspect]
     Active Substance: CLORAZEPATE DIPOTASSIUM
     Indication: ANXIETY
     Dosage: 7.5 MG, 1X/DAY
     Route: 048
     Dates: start: 201903, end: 201903
  2. CLORAZEPATE DIPOTASSIUM TABLETS USP 7.5 MG [Suspect]
     Active Substance: CLORAZEPATE DIPOTASSIUM
     Indication: BACK PAIN
     Dosage: 15 MG, 1X/DAY
     Route: 048
     Dates: start: 201903
  3. CLORAZEPATE DIPOTASSIUM TABLETS USP 3.75 MG [Suspect]
     Active Substance: CLORAZEPATE DIPOTASSIUM
     Indication: BACK PAIN
  4. CLORAZEPATE DIPOTASSIUM TABLETS USP 3.75 MG [Suspect]
     Active Substance: CLORAZEPATE DIPOTASSIUM
     Indication: SLEEP DISORDER
     Dosage: UNK UNK, 1X/DAY AT BEDTIME
     Route: 048
  5. CLORAZEPATE DIPOTASSIUM TABLETS USP 7.5 MG [Suspect]
     Active Substance: CLORAZEPATE DIPOTASSIUM
     Indication: SLEEP DISORDER
     Dosage: 7.5 MG, 2X/DAY
     Route: 048
  6. CLORAZEPATE DIPOTASSIUM TABLETS USP 15 MG [Suspect]
     Active Substance: CLORAZEPATE DIPOTASSIUM
     Indication: SLEEP DISORDER
     Dosage: UNK
     Route: 048
  7. CLORAZEPATE DIPOTASSIUM TABLETS USP 15 MG [Suspect]
     Active Substance: CLORAZEPATE DIPOTASSIUM
     Indication: ANXIETY
  8. CLORAZEPATE DIPOTASSIUM TABLETS USP 15 MG [Suspect]
     Active Substance: CLORAZEPATE DIPOTASSIUM
     Indication: BACK PAIN
  9. CLORAZEPATE DIPOTASSIUM TABLETS USP 3.75 MG [Suspect]
     Active Substance: CLORAZEPATE DIPOTASSIUM
     Indication: ANXIETY

REACTIONS (12)
  - Upper-airway cough syndrome [Not Recovered/Not Resolved]
  - Unevaluable event [Not Recovered/Not Resolved]
  - Sinusitis [Not Recovered/Not Resolved]
  - Drug ineffective for unapproved indication [Not Recovered/Not Resolved]
  - Personality change [Not Recovered/Not Resolved]
  - Decreased activity [Not Recovered/Not Resolved]
  - Tinnitus [Not Recovered/Not Resolved]
  - Product substitution issue [Recovered/Resolved]
  - Feeling jittery [Recovered/Resolved]
  - Feeling abnormal [Not Recovered/Not Resolved]
  - Sleep disorder [Not Recovered/Not Resolved]
  - Depression [Not Recovered/Not Resolved]

NARRATIVE: CASE EVENT DATE: 201903
